FAERS Safety Report 4965960-9 (Version None)
Quarter: 2006Q2

REPORT INFORMATION
  Report Type: 
  Country: None (occurrence: None)
  Receive Date: 20060407
  Receipt Date: 20060217
  Transmission Date: 20061013
  Serious: Yes (Hospitalization, Other)
  Sender: FDA-Public Use
  Company Number: PHHO2006JP03148

PATIENT
  Age: 41 Year
  Sex: Male

DRUGS (4)
  1. DIOVAN [Suspect]
     Indication: HYPERTENSION
     Dosage: 80 MG/DAY
     Route: 048
     Dates: start: 20030418, end: 20050425
  2. DIOVAN [Suspect]
     Dosage: 160 MG/DAY
     Route: 048
     Dates: start: 20050426
  3. NATRIX [Concomitant]
  4. CARDENALIN [Concomitant]

REACTIONS (2)
  - CELLULITIS [None]
  - HYPERLIPIDAEMIA [None]
